FAERS Safety Report 19138489 (Version 5)
Quarter: 2022Q4

REPORT INFORMATION
  Report Type: Report from Study
  Country: US (occurrence: US)
  Receive Date: 20210415
  Receipt Date: 20221026
  Transmission Date: 20230113
  Serious: Yes (Hospitalization)
  Sender: FDA-Public Use
  Company Number: US-KYOWAKIRIN-2021BKK005819

PATIENT

DRUGS (4)
  1. CRYSVITA [Suspect]
     Active Substance: BUROSUMAB-TWZA
     Indication: Hereditary hypophosphataemic rickets
     Dosage: 50 MG, 1X/4 WEEKS(EVERY 4 WEEEKS)
     Route: 065
  2. CRYSVITA [Suspect]
     Active Substance: BUROSUMAB-TWZA
     Indication: Hereditary hypophosphataemic rickets
     Dosage: 20 MG, 1X/4 WEEKS
     Route: 058
     Dates: start: 20200918
  3. CRYSVITA [Suspect]
     Active Substance: BUROSUMAB-TWZA
     Dosage: 80 MG, 1X/4 WEEKS
     Route: 058
  4. CRYSVITA [Suspect]
     Active Substance: BUROSUMAB-TWZA
     Indication: Hereditary hypophosphataemic rickets
     Dosage: 30 MG, 1X/4 WEEKS
     Route: 058
     Dates: start: 20200918

REACTIONS (4)
  - Surgery [Unknown]
  - Arthralgia [Unknown]
  - Knee operation [Unknown]
  - Inappropriate schedule of product administration [Unknown]

NARRATIVE: CASE EVENT DATE: 20210317
